FAERS Safety Report 24812278 (Version 2)
Quarter: 2025Q1

REPORT INFORMATION
  Report Type: Spontaneous
  Country: US (occurrence: US)
  Receive Date: 20250106
  Receipt Date: 20250218
  Transmission Date: 20250409
  Serious: Yes (Other)
  Sender: SANOFI AVENTIS
  Company Number: US-SA-2025SA004049

PATIENT
  Age: 80 Year
  Sex: Female

DRUGS (16)
  1. DUPIXENT [Suspect]
     Active Substance: DUPILUMAB
     Indication: Asthma
     Route: 058
     Dates: start: 20221028
  2. KLONOPIN [Concomitant]
     Active Substance: CLONAZEPAM
  3. ALOSETRON [Concomitant]
     Active Substance: ALOSETRON
  4. SIMVASTATIN [Concomitant]
     Active Substance: SIMVASTATIN
  5. OXYCODONE [Concomitant]
     Active Substance: OXYCODONE
  6. GABAPENTIN [Concomitant]
     Active Substance: GABAPENTIN
  7. IRON [Concomitant]
     Active Substance: IRON
  8. HYDROCODONE [Concomitant]
     Active Substance: HYDROCODONE
  9. POTASSIUM [Concomitant]
     Active Substance: POTASSIUM
  10. ADVAIR HFA [Concomitant]
     Active Substance: FLUTICASONE PROPIONATE\SALMETEROL XINAFOATE
  11. ADDERALL [Concomitant]
     Active Substance: AMPHETAMINE ASPARTATE\AMPHETAMINE SULFATE\DEXTROAMPHETAMINE SACCHARATE\DEXTROAMPHETAMINE SULFATE
  12. ABILIFY [Concomitant]
     Active Substance: ARIPIPRAZOLE
  13. VITAMIN B12 [Concomitant]
     Active Substance: CYANOCOBALAMIN
  14. NUCALA [Concomitant]
     Active Substance: MEPOLIZUMAB
  15. LOSARTAN [Concomitant]
     Active Substance: LOSARTAN
  16. CELECOXIB [Concomitant]
     Active Substance: CELECOXIB

REACTIONS (2)
  - Spinal cord injury [Unknown]
  - Fall [Unknown]

NARRATIVE: CASE EVENT DATE: 20250103
